FAERS Safety Report 19503644 (Version 6)
Quarter: 2021Q4

REPORT INFORMATION
  Report Type: Spontaneous
  Country: US (occurrence: US)
  Receive Date: 20210707
  Receipt Date: 20211011
  Transmission Date: 20220303
  Serious: Yes (Hospitalization, Other)
  Sender: FDA-Public Use
  Company Number: US-JNJFOC-20210702311

PATIENT
  Sex: Male

DRUGS (9)
  1. UPTRAVI [Suspect]
     Active Substance: SELEXIPAG
     Indication: Product used for unknown indication
     Route: 065
  2. UPTRAVI [Suspect]
     Active Substance: SELEXIPAG
     Route: 065
  3. UPTRAVI [Suspect]
     Active Substance: SELEXIPAG
     Route: 065
  4. UPTRAVI [Suspect]
     Active Substance: SELEXIPAG
     Route: 065
  5. UPTRAVI [Suspect]
     Active Substance: SELEXIPAG
     Route: 065
  6. AMBRISENTAN [Suspect]
     Active Substance: AMBRISENTAN
     Indication: Pulmonary hypertension
     Route: 048
     Dates: start: 20161128
  7. AMBRISENTAN [Suspect]
     Active Substance: AMBRISENTAN
     Route: 048
  8. ELIQUIS [Concomitant]
     Active Substance: APIXABAN
  9. TADALAFIL [Concomitant]
     Active Substance: TADALAFIL

REACTIONS (16)
  - Pneumonia [Unknown]
  - Fluid retention [Unknown]
  - Blood urine present [Not Recovered/Not Resolved]
  - Haemorrhage urinary tract [Not Recovered/Not Resolved]
  - Arthralgia [Not Recovered/Not Resolved]
  - Myalgia [Not Recovered/Not Resolved]
  - Pain in jaw [Unknown]
  - Weight decreased [Not Recovered/Not Resolved]
  - Pain threshold decreased [Unknown]
  - Back injury [Unknown]
  - Insomnia [Unknown]
  - Hypokinesia [Unknown]
  - Pain [Unknown]
  - Back pain [Not Recovered/Not Resolved]
  - Malaise [Not Recovered/Not Resolved]
  - Myalgia [Unknown]
